FAERS Safety Report 5631834-3 (Version None)
Quarter: 2008Q1

REPORT INFORMATION
  Report Type: 
  Country: None (occurrence: None)
  Receive Date: 20080220
  Receipt Date: 20080213
  Transmission Date: 20080703
  Serious: Yes (Other)
  Sender: FDA-Public Use
  Company Number: PHNU2008DE00980

PATIENT
  Sex: Male

DRUGS (5)
  1. RASILEZ [Suspect]
     Indication: HYPERTENSION
     Dosage: 300 MG, QD
     Route: 048
     Dates: start: 20080101
  2. ASPIRIN [Concomitant]
     Indication: HYPERTENSION
     Dates: start: 20071119, end: 20071201
  3. INEGY [Concomitant]
     Indication: HYPERLIPIDAEMIA
  4. CARDULAR [Concomitant]
     Indication: HYPERTENSION
  5. RASILEZ [Suspect]
     Dosage: 150 MG, QD
     Route: 048
     Dates: start: 20071201, end: 20080101

REACTIONS (2)
  - BLOOD PRESSURE INADEQUATELY CONTROLLED [None]
  - EPISTAXIS [None]
